APPROVED DRUG PRODUCT: EXTENDED PHENYTOIN SODIUM
Active Ingredient: PHENYTOIN SODIUM
Strength: 100MG EXTENDED
Dosage Form/Route: CAPSULE;ORAL
Application: A219773 | Product #001 | TE Code: AB
Applicant: MANKIND PHARMA LTD
Approved: Jan 2, 2026 | RLD: No | RS: No | Type: RX